FAERS Safety Report 19004939 (Version 9)
Quarter: 2022Q4

REPORT INFORMATION
  Report Type: Report from Study
  Country: CO (occurrence: CO)
  Receive Date: 20210313
  Receipt Date: 20221116
  Transmission Date: 20230112
  Serious: Yes (Other)
  Sender: FDA-Public Use
  Company Number: CO-TAKEDA-CO202026781

PATIENT
  Age: 10 Year
  Sex: Male
  Weight: 54 kg

DRUGS (3)
  1. IDURSULFASE [Suspect]
     Active Substance: IDURSULFASE
     Indication: Mucopolysaccharidosis II
     Dosage: 0.5 MILLIGRAM/KILOGRAM, 1/WEEK
     Route: 042
     Dates: start: 20120501
  2. IDURSULFASE [Suspect]
     Active Substance: IDURSULFASE
     Dosage: 24 MILLIGRAM, 1/WEEK
     Route: 042
     Dates: start: 20120501
  3. IDURSULFASE [Suspect]
     Active Substance: IDURSULFASE
     Dosage: 30 MILLIGRAM, 1/WEEK
     Route: 042
     Dates: start: 20120501

REACTIONS (14)
  - Central venous catheterisation [Recovering/Resolving]
  - Neck pain [Recovering/Resolving]
  - Illness [Recovering/Resolving]
  - Weight increased [Unknown]
  - Asthenia [Recovering/Resolving]
  - Vomiting [Recovered/Resolved]
  - Influenza [Recovering/Resolving]
  - Pyrexia [Recovering/Resolving]
  - Cough [Recovering/Resolving]
  - Inappropriate schedule of product administration [Unknown]
  - Product dose omission issue [Recovered/Resolved]
  - Tonsillitis [Recovering/Resolving]
  - Body height increased [Unknown]
  - Product prescribing error [Unknown]

NARRATIVE: CASE EVENT DATE: 20200809
